FAERS Safety Report 12630654 (Version 2)
Quarter: 2017Q4

REPORT INFORMATION
  Report Type: Spontaneous
  Country: US (occurrence: US)
  Receive Date: 20160808
  Receipt Date: 20171106
  Transmission Date: 20180320
  Serious: No
  Sender: FDA-Public Use
  Company Number: US-PFIZER INC-2016360934

PATIENT
  Age: 63 Year
  Sex: Male

DRUGS (3)
  1. XALKORI [Suspect]
     Active Substance: CRIZOTINIB
     Dosage: 250 MG, 2X/DAY
     Route: 048
     Dates: start: 201606
  2. XALKORI [Suspect]
     Active Substance: CRIZOTINIB
     Indication: BREAST CANCER
     Dosage: 250 MG, 2X/DAY (TAKE 1 CAPSULE BY MOUTH TWICE A DAY)
     Route: 048
     Dates: start: 201605, end: 201606
  3. XALKORI [Suspect]
     Active Substance: CRIZOTINIB
     Indication: LUNG CANCER METASTATIC
     Dosage: 250 MG, 1X/DAY
     Dates: start: 20160718

REACTIONS (3)
  - Dyspnoea [Unknown]
  - Cough [Unknown]
  - Syncope [Unknown]
